FAERS Safety Report 20842865 (Version 2)
Quarter: 2022Q2

REPORT INFORMATION
  Report Type: Spontaneous
  Country: CH (occurrence: CH)
  Receive Date: 20220518
  Receipt Date: 20220523
  Transmission Date: 20220720
  Serious: Yes (Hospitalization)
  Sender: FDA-Public Use
  Company Number: CH-NOVARTISPH-NVSC2022CH112697

PATIENT
  Age: 72 Year
  Sex: Female

DRUGS (3)
  1. ALLOPURINOL [Suspect]
     Active Substance: ALLOPURINOL
     Indication: Gout
     Dosage: UNK
     Route: 065
  2. CIPROFLOXACIN [Concomitant]
     Active Substance: CIPROFLOXACIN
     Indication: Urinary tract infection
     Dosage: UNK
     Route: 065
  3. PREDNISOLONE [Concomitant]
     Active Substance: PREDNISOLONE
     Indication: Adrenal insufficiency
     Dosage: 10 MG
     Route: 065

REACTIONS (16)
  - Drug reaction with eosinophilia and systemic symptoms [Recovered/Resolved]
  - Pyrexia [Unknown]
  - Asthenia [Unknown]
  - Decreased appetite [Recovered/Resolved]
  - Diarrhoea [Recovered/Resolved]
  - Vomiting [Recovered/Resolved]
  - Rash maculo-papular [Recovered/Resolved]
  - Hypotension [Unknown]
  - Tachycardia [Unknown]
  - Tachypnoea [Unknown]
  - Dehydration [Unknown]
  - Anaemia [Unknown]
  - Eosinophilia [Recovered/Resolved]
  - Cholestasis [Recovered/Resolved]
  - Colitis [Recovered/Resolved]
  - Acute kidney injury [Recovered/Resolved]
